FAERS Safety Report 12208558 (Version 2)
Quarter: 2016Q2

REPORT INFORMATION
  Report Type: Spontaneous
  Country: US (occurrence: US)
  Receive Date: 20160324
  Receipt Date: 20160401
  Transmission Date: 20160815
  Serious: Yes (Other)
  Sender: FDA-Public Use
  Company Number: US-BAYER-2016-056175

PATIENT
  Age: 43 Year
  Sex: Male

DRUGS (2)
  1. HELIXATE FS [Suspect]
     Active Substance: ANTIHEMOPHILIC FACTOR, HUMAN RECOMBINANT
     Indication: FACTOR VIII DEFICIENCY
     Dosage: 1600 UNK, EVERY 24 HOURS
     Route: 042
     Dates: start: 20160226
  2. HELIXATE FS [Suspect]
     Active Substance: ANTIHEMOPHILIC FACTOR, HUMAN RECOMBINANT
     Indication: FACTOR VIII DEFICIENCY
     Dosage: 1600 UNK, EVERY 24 HOURS
     Route: 042
     Dates: start: 20160226

REACTIONS (3)
  - Pain in extremity [Unknown]
  - Polypectomy [Unknown]
  - Polyp [Unknown]

NARRATIVE: CASE EVENT DATE: 20160229
